FAERS Safety Report 7323416-2 (Version None)
Quarter: 2011Q1

REPORT INFORMATION
  Report Type: 
  Country: None (occurrence: None)
  Receive Date: 20110301
  Receipt Date: 20110218
  Transmission Date: 20110831
  Serious: Yes (Other)
  Sender: FDA-Public Use
  Company Number: FR-SANOFI-AVENTIS-2011SA010582

PATIENT
  Age: 83 Year
  Sex: Female

DRUGS (7)
  1. PREVISCAN [Concomitant]
  2. CALCIUM [Concomitant]
  3. FORLAX [Concomitant]
  4. LOXEN [Concomitant]
  5. MULTAQ [Suspect]
     Indication: ATRIAL FIBRILLATION
     Route: 048
     Dates: start: 20101101
  6. VASTAREL ^SERVIER^ [Concomitant]
  7. XANAX [Concomitant]

REACTIONS (1)
  - HYPERTHYROIDISM [None]
